FAERS Safety Report 6847431-8 (Version None)
Quarter: 2010Q3

REPORT INFORMATION
  Report Type: 
  Country: None (occurrence: None)
  Receive Date: 20100713
  Receipt Date: 20100628
  Transmission Date: 20110219
  Serious: Yes (Hospitalization)
  Sender: FDA-Public Use
  Company Number: 1000014977

PATIENT
  Age: 87 Year
  Sex: Male

DRUGS (8)
  1. MEMANTINE HCL [Suspect]
     Dosage: 20 MG (10 MG, 2 IN 1 D), ORAL
     Route: 048
  2. LANTUS [Suspect]
     Indication: TYPE 2 DIABETES MELLITUS
     Dosage: (16 IU)
     Dates: start: 20000101
  3. ACEBUTOLOL [Suspect]
     Indication: HYPERTENSION
     Dosage: (200 MG), ORAL
     Route: 048
  4. APROVEL (TABLETS) [Suspect]
     Indication: HYPERTENSION
     Dosage: 75 MG (75 MG, 1 IN 1 D), ORAL
     Route: 048
     Dates: end: 20090924
  5. NAFTIDROFURYL [Suspect]
     Dosage: (600 MG), ORAL
     Route: 048
  6. CORVASAL (TABLETS) [Concomitant]
  7. LANSOPRAZOLE [Concomitant]
  8. PLAVIX [Concomitant]

REACTIONS (8)
  - ASTHENIA [None]
  - FALL [None]
  - GENERAL PHYSICAL HEALTH DETERIORATION [None]
  - MALAISE [None]
  - ORTHOSTATIC HYPOTENSION [None]
  - SINUS BRADYCARDIA [None]
  - TACHYCARDIA [None]
  - WEIGHT DECREASED [None]
